FAERS Safety Report 25858634 (Version 3)
Quarter: 2025Q4

REPORT INFORMATION
  Report Type: Spontaneous
  Country: US (occurrence: US)
  Receive Date: 20250929
  Receipt Date: 20251030
  Transmission Date: 20260118
  Serious: No
  Sender: PFIZER
  Company Number: US-PFIZER INC-202500184390

PATIENT
  Age: 7 Year
  Sex: Male
  Weight: 19.6 kg

DRUGS (3)
  1. GENOTROPIN [Suspect]
     Active Substance: SOMATROPIN
     Indication: Hypopituitarism
     Dosage: 7 DAYS/WEEK
  2. GENOTROPIN [Suspect]
     Active Substance: SOMATROPIN
     Indication: Growth hormone deficiency
     Dosage: IT IS 6 UNITS WITH AN INSULIN SYRINGE. SINCE THE PEN DEVICE IS NO LONGER AVAILABLE.
  3. GENOTROPIN [Suspect]
     Active Substance: SOMATROPIN
     Dosage: 1.2 MG, DAILY

REACTIONS (3)
  - Product prescribing error [Unknown]
  - Drug administered in wrong device [Unknown]
  - Product preparation issue [Unknown]
